FAERS Safety Report 23946259 (Version 1)
Quarter: 2024Q2

REPORT INFORMATION
  Report Type: Other
  Country: A1 (occurrence: US)
  Receive Date: 20240606
  Receipt Date: 20240606
  Transmission Date: 20240716
  Serious: Yes (Other)
  Sender: FDA-Public Use
  Company Number: US-Nephron Pharmaceuticals Corporation-2157852

PATIENT
  Age: 67 Year
  Sex: Female

DRUGS (1)
  1. ALBUTEROL SULFATE [Suspect]
     Active Substance: ALBUTEROL SULFATE
     Indication: Respiratory tract infection

REACTIONS (1)
  - Lactic acidosis [Recovered/Resolved]
